FAERS Safety Report 8544565-7 (Version None)
Quarter: 2012Q3

REPORT INFORMATION
  Report Type: 
  Country: None (occurrence: None)
  Receive Date: 20120727
  Receipt Date: 20120720
  Transmission Date: 20120928
  Serious: Yes (Other)
  Sender: FDA-Public Use
  Company Number: FR-ABBOTT-12P-056-0958837-00

PATIENT
  Sex: Female

DRUGS (6)
  1. AZATHIOPRINE [Concomitant]
     Indication: CROHN'S DISEASE
  2. HUMIRA [Suspect]
     Route: 058
  3. IMURAN [Concomitant]
     Indication: CROHN'S DISEASE
     Dates: start: 20000101, end: 20091130
  4. HUMIRA [Suspect]
     Indication: CROHN'S DISEASE
     Dosage: INDUCTION
     Route: 058
     Dates: start: 20090417, end: 20090417
  5. LEVOTHYROXINE SODIUM [Concomitant]
     Indication: HYPOTHYROIDISM
     Dates: start: 20040101
  6. HUMIRA [Suspect]
     Route: 058

REACTIONS (1)
  - MALIGNANT MELANOMA [None]
